FAERS Safety Report 9001616 (Version 4)
Quarter: 2013Q1

REPORT INFORMATION
  Report Type: Spontaneous
  Country: JP (occurrence: JP)
  Receive Date: 20130107
  Receipt Date: 20130301
  Transmission Date: 20140127
  Serious: Yes (Death, Hospitalization)
  Sender: FDA-Public Use
  Company Number: JP-B.I. PHARMACEUTICALS,INC./RIDGEFIELD-2013-BI-00307NB

PATIENT
  Age: 82 Year
  Sex: Female

DRUGS (10)
  1. PRAZAXA [Suspect]
     Indication: ATRIAL FIBRILLATION
     Dosage: 220 MG
     Route: 048
     Dates: start: 20121220, end: 20121226
  2. HEPARIN [Concomitant]
     Route: 065
     Dates: start: 20121113
  3. MAINTATE [Concomitant]
     Dosage: 5 MG
     Route: 065
  4. COVERSYL [Concomitant]
     Dosage: 4 MG
     Route: 065
  5. DIART [Concomitant]
     Dosage: 30 MG
     Route: 065
  6. SIGMART [Concomitant]
     Dosage: 15 MG
     Route: 065
  7. PERSANTIN [Concomitant]
     Dosage: 75 MG
     Route: 065
     Dates: end: 20121220
  8. VASOLAN [Concomitant]
     Dosage: 120 MG
     Route: 065
     Dates: start: 20121113
  9. LACB R [Concomitant]
     Dosage: 3 G
     Route: 065
  10. PYRINAZIN [Concomitant]
     Dosage: 0.5 G
     Route: 065

REACTIONS (3)
  - Shock haemorrhagic [Fatal]
  - Rectal ulcer haemorrhage [Fatal]
  - Cardiac failure [Unknown]
